FAERS Safety Report 4381984-7 (Version None)
Quarter: 2004Q2

REPORT INFORMATION
  Report Type: 
  Country: None (occurrence: None)
  Receive Date: 20040615
  Receipt Date: 20040601
  Transmission Date: 20050107
  Serious: Yes (Hospitalization)
  Sender: FDA-Public Use
  Company Number: 2003-BP-01817BP

PATIENT
  Age: 64 Year
  Sex: Male

DRUGS (6)
  1. MICARDIS [Suspect]
     Indication: CEREBROVASCULAR ACCIDENT PROPHYLAXIS
     Dosage: 80 MG (80 MG), PO
     Route: 048
     Dates: start: 20021129, end: 20030105
  2. MICARDIS [Suspect]
     Indication: PROPHYLAXIS
     Dosage: 80 MG (80 MG), PO
     Route: 048
     Dates: start: 20021129, end: 20030105
  3. RAMIPRIL [Suspect]
     Indication: CEREBROVASCULAR ACCIDENT PROPHYLAXIS
     Dosage: 10 MG (10 MG), PO
     Route: 048
     Dates: start: 20021129, end: 20030105
  4. RAMIPRIL [Suspect]
     Indication: PROPHYLAXIS
     Dosage: 10 MG (10 MG), PO
     Route: 048
     Dates: start: 20021129, end: 20030105
  5. INSULIN (NR) [Concomitant]
  6. ASA (ACETYLSALICYLIC ACID) (NR) [Concomitant]

REACTIONS (1)
  - THERAPEUTIC AGENT TOXICITY [None]
